FAERS Safety Report 21533160 (Version 1)
Quarter: 2022Q4

REPORT INFORMATION
  Report Type: Report from Study
  Country: US (occurrence: US)
  Receive Date: 20221101
  Receipt Date: 20221101
  Transmission Date: 20230112
  Serious: No
  Sender: FDA-Public Use
  Company Number: US-ABBVIE-22K-163-4486063-00

PATIENT
  Sex: Male

DRUGS (5)
  1. HUMIRA [Suspect]
     Active Substance: ADALIMUMAB
     Indication: Rheumatoid arthritis
     Dosage: CITRATE FREE
     Route: 058
     Dates: end: 202208
  2. Covid vaccine: Pfizer/BioNtech [Concomitant]
     Indication: COVID-19 immunisation
     Dosage: TIME INTERVAL: TOTAL: FIRST DOSE
     Route: 030
     Dates: start: 20210308, end: 20210308
  3. Covid vaccine: Pfizer/BioNtech [Concomitant]
     Indication: COVID-19 immunisation
     Dosage: TIME INTERVAL: TOTAL: THIRD DOSE
     Route: 030
     Dates: start: 20211103, end: 20211103
  4. Covid vaccine: Pfizer/BioNtech [Concomitant]
     Indication: COVID-19 immunisation
     Dosage: TIME INTERVAL: TOTAL: FOURTH DOSE: BOOSTER SHOT
     Route: 030
     Dates: start: 20220524, end: 20220524
  5. Covid vaccine: Pfizer/BioNtech [Concomitant]
     Indication: COVID-19 immunisation
     Dosage: TIME INTERVAL: TOTAL: SECOND DOSE
     Route: 030
     Dates: start: 20210408, end: 20210408

REACTIONS (1)
  - Arthralgia [Recovering/Resolving]
